FAERS Safety Report 24713824 (Version 1)
Quarter: 2024Q4

REPORT INFORMATION
  Report Type: Report from Study
  Country: JP (occurrence: JP)
  Receive Date: 20241209
  Receipt Date: 20241209
  Transmission Date: 20250115
  Serious: Yes (Death, Other)
  Sender: BRISTOL-MYERS SQUIBB COMPANY
  Company Number: JP-BRISTOL-MYERS SQUIBB COMPANY-2024-189855

PATIENT
  Age: 69 Year
  Sex: Female
  Weight: 49.6 kg

DRUGS (3)
  1. BREYANZI [Suspect]
     Active Substance: LISOCABTAGENE MARALEUCEL
     Indication: Diffuse large B-cell lymphoma
     Dosage: TOTAL NUMBER OF CELLS ADMINISTERED INTRAVENOUSLY: 10X10^7, TYPE OF ADMINISTERED CELLS: TOTAL NUMBER
     Route: 041
     Dates: start: 20230426, end: 20230426
  2. CYCLOPHOSPHAMIDE [Concomitant]
     Active Substance: CYCLOPHOSPHAMIDE
     Indication: Diffuse large B-cell lymphoma
     Dosage: THE TOTAL DOSAGE WAS 900
     Dates: start: 20230421
  3. FLUDARABINE [Concomitant]
     Active Substance: FLUDARABINE PHOSPHATE
     Indication: Diffuse large B-cell lymphoma
     Dosage: THE TOTAL DOSAGE WAS 90
     Dates: start: 20230421

REACTIONS (10)
  - Cytokine release syndrome [Recovered/Resolved]
  - Malignant neoplasm progression [Fatal]
  - Staphylococcal infection [Unknown]
  - Cardiac failure [Fatal]
  - Respiratory failure [Fatal]
  - White blood cell count decreased [Unknown]
  - Neutrophil count decreased [Unknown]
  - Lymphocyte count decreased [Unknown]
  - Haemoglobin decreased [Unknown]
  - Platelet count decreased [Unknown]

NARRATIVE: CASE EVENT DATE: 20230427
